FAERS Safety Report 4581697-2 (Version None)
Quarter: 2005Q1

REPORT INFORMATION
  Report Type: 
  Country: None (occurrence: None)
  Receive Date: 20050214
  Receipt Date: 20041220
  Transmission Date: 20050727
  Serious: No
  Sender: FDA-Public Use
  Company Number: US-GLAXOSMITHKLINE-A0538015A

PATIENT
  Age: 72 Year
  Sex: Female

DRUGS (6)
  1. LAMICTAL [Suspect]
     Indication: BIPOLAR DISORDER
     Dosage: 25MG PER DAY
     Route: 048
     Dates: start: 20041208
  2. ZOLOFT [Concomitant]
  3. XANAX [Concomitant]
  4. POTASSIUM CHLORIDE [Concomitant]
  5. VITAMIN C [Concomitant]
  6. THYROID TAB [Concomitant]

REACTIONS (1)
  - RASH [None]
